FAERS Safety Report 4305152-X (Version None)
Quarter: 2004Q1

REPORT INFORMATION
  Report Type: 
  Country: None (occurrence: None)
  Receive Date: 20040223
  Receipt Date: 20040105
  Transmission Date: 20041129
  Serious: No
  Sender: FDA-Public Use
  Company Number: SU-2004-002040

PATIENT
  Age: 57 Year
  Sex: Male
  Weight: 124.7392 kg

DRUGS (2)
  1. BENICAR [Suspect]
     Indication: HYPERTENSION
     Dosage: 20 MG QD PO
     Route: 048
     Dates: start: 20031001
  2. LIPITOR [Concomitant]

REACTIONS (1)
  - PHARYNGOLARYNGEAL PAIN [None]
